FAERS Safety Report 25244726 (Version 1)
Quarter: 2025Q2

REPORT INFORMATION
  Report Type: Spontaneous
  Country: US (occurrence: US)
  Receive Date: 20250428
  Receipt Date: 20250428
  Transmission Date: 20250716
  Serious: Yes (Hospitalization)
  Sender: AKEBIA THERAPEUTICS
  Company Number: US-AKEBIA THERAPEUTICS, INC.-US-AKEB-25-000227

PATIENT
  Sex: Female

DRUGS (1)
  1. VADADUSTAT [Suspect]
     Active Substance: VADADUSTAT
     Indication: Anaemia
     Route: 065

REACTIONS (1)
  - Arrhythmia [Recovered/Resolved]
